FAERS Safety Report 25323742 (Version 2)
Quarter: 2025Q2

REPORT INFORMATION
  Report Type: Report from Study
  Country: NL (occurrence: NL)
  Receive Date: 20250516
  Receipt Date: 20250527
  Transmission Date: 20250717
  Serious: Yes (Other)
  Sender: MYLAN
  Company Number: NL-MYLANLABS-2025M1040782

PATIENT
  Sex: Female

DRUGS (4)
  1. GLATIRAMER ACETATE [Suspect]
     Active Substance: GLATIRAMER ACETATE
     Indication: Multiple sclerosis relapse
     Dosage: 40 MILLIGRAM, QW (PER WEEK)
     Dates: start: 20210121, end: 20250409
  2. GLATIRAMER ACETATE [Suspect]
     Active Substance: GLATIRAMER ACETATE
     Dosage: 40 MILLIGRAM, QW (PER WEEK)
     Route: 058
     Dates: start: 20210121, end: 20250409
  3. GLATIRAMER ACETATE [Suspect]
     Active Substance: GLATIRAMER ACETATE
     Dosage: 40 MILLIGRAM, QW (PER WEEK)
     Route: 058
     Dates: start: 20210121, end: 20250409
  4. GLATIRAMER ACETATE [Suspect]
     Active Substance: GLATIRAMER ACETATE
     Dosage: 40 MILLIGRAM, QW (PER WEEK)
     Dates: start: 20210121, end: 20250409

REACTIONS (1)
  - Multiple sclerosis [Unknown]
